FAERS Safety Report 19823338 (Version 1)
Quarter: 2021Q3

REPORT INFORMATION
  Report Type: Spontaneous
  Country: US (occurrence: US)
  Receive Date: 20210913
  Receipt Date: 20210913
  Transmission Date: 20211014
  Serious: No
  Sender: FDA-Public Use
  Company Number: US-GALDERMA-US2021015505

PATIENT

DRUGS (1)
  1. DIFFERIN GEL [Suspect]
     Active Substance: ADAPALENE
     Indication: ACNE CYSTIC
     Dosage: 1 DOSAGE FORM
     Route: 061

REACTIONS (5)
  - Skin exfoliation [Unknown]
  - Skin irritation [Unknown]
  - Product use in unapproved indication [Recovered/Resolved]
  - Wrong technique in product usage process [Recovered/Resolved]
  - Drug effective for unapproved indication [Recovered/Resolved]
